FAERS Safety Report 8346661-6 (Version None)
Quarter: 2012Q2

REPORT INFORMATION
  Report Type: 
  Country: None (occurrence: None)
  Receive Date: 20120508
  Receipt Date: 20120508
  Transmission Date: 20120825
  Serious: Yes (Other)
  Sender: FDA-Public Use
  Company Number: None

PATIENT
  Age: 69 Year
  Sex: Female
  Weight: 91.8 kg

DRUGS (3)
  1. FERAHEME [Suspect]
     Indication: GASTROINTESTINAL DISORDER
     Dosage: 510 MG ONCE IVP
     Route: 042
     Dates: start: 20120412
  2. FERAHEME [Suspect]
     Indication: IRON DEFICIENCY ANAEMIA
     Dosage: 510 MG ONCE IVP
     Route: 042
     Dates: start: 20120412
  3. FERAHEME [Suspect]
     Indication: AUTOIMMUNE DISORDER
     Dosage: 510 MG ONCE IVP
     Route: 042
     Dates: start: 20120412

REACTIONS (5)
  - NAUSEA [None]
  - DYSPNOEA [None]
  - BLOOD PRESSURE SYSTOLIC INCREASED [None]
  - CHILLS [None]
  - CHEST PAIN [None]
